FAERS Safety Report 19359705 (Version 1)
Quarter: 2021Q2

REPORT INFORMATION
  Report Type: Spontaneous
  Country: IT (occurrence: IT)
  Receive Date: 20210602
  Receipt Date: 20210602
  Transmission Date: 20210717
  Serious: Yes (Other)
  Sender: FDA-Public Use
  Company Number: IT-DRREDDYS-GER/ITL/21/0135830

PATIENT
  Age: 19 Year
  Sex: Female

DRUGS (3)
  1. IBUPROFEN. [Suspect]
     Active Substance: IBUPROFEN
     Indication: INTENTIONAL SELF-INJURY
     Dates: start: 20210324, end: 20210324
  2. PARACETAMOL [Suspect]
     Active Substance: ACETAMINOPHEN
     Indication: INTENTIONAL SELF-INJURY
     Dates: start: 20210324, end: 20210324
  3. MOMENDOL 220 MG COMPRESSE RIVESTITE CON FILM [Suspect]
     Active Substance: NAPROXEN SODIUM
     Indication: INTENTIONAL SELF-INJURY
     Dates: start: 20210324, end: 20210324

REACTIONS (3)
  - Abdominal pain upper [Recovering/Resolving]
  - Drug abuse [Recovering/Resolving]
  - Intentional self-injury [Recovering/Resolving]

NARRATIVE: CASE EVENT DATE: 20210325
